FAERS Safety Report 5699091-X (Version None)
Quarter: 2008Q2

REPORT INFORMATION
  Report Type: 
  Country: None (occurrence: None)
  Receive Date: 20080329
  Receipt Date: 20080218
  Transmission Date: 20081010
  Serious: Yes (Other)
  Sender: FDA-Public Use
  Company Number: PHEH2008US01999

PATIENT
  Age: 9 Year
  Sex: Male
  Weight: 38.5 kg

DRUGS (1)
  1. FOCALIN XR [Suspect]
     Indication: ATTENTION DEFICIT/HYPERACTIVITY DISORDER
     Dosage: 5 MG, QAM, ORAL
     Route: 048
     Dates: start: 20071022, end: 20071028

REACTIONS (1)
  - CHEST PAIN [None]
